FAERS Safety Report 10597103 (Version 2)
Quarter: 2014Q4

REPORT INFORMATION
  Report Type: Report from Study
  Country: PL (occurrence: PL)
  Receive Date: 20141121
  Receipt Date: 20141121
  Transmission Date: 20150529
  Serious: Yes (Other)
  Sender: FDA-Public Use
  Company Number: PL-ACCORD-027132

PATIENT
  Age: 56 Year
  Sex: Female

DRUGS (4)
  1. TACROLIMUS. [Suspect]
     Active Substance: TACROLIMUS
     Indication: TRANSPLANT
  2. MYCOPHENOLIC ACID. [Suspect]
     Active Substance: MYCOPHENOLIC ACID
     Indication: TRANSPLANT
  3. PREDNISONE. [Suspect]
     Active Substance: PREDNISONE
     Indication: TRANSPLANT
  4. BASILIXIMAB [Suspect]
     Active Substance: BASILIXIMAB
     Indication: TRANSPLANT

REACTIONS (8)
  - Left ventricular hypertrophy [Unknown]
  - Hyperuricaemia [Unknown]
  - Dyslipidaemia [Unknown]
  - Diastolic dysfunction [Unknown]
  - Chronic kidney disease [Unknown]
  - Hypertension [Unknown]
  - Off label use [Unknown]
  - Diabetes mellitus [Not Recovered/Not Resolved]
